FAERS Safety Report 5386485-5 (Version None)
Quarter: 2007Q3

REPORT INFORMATION
  Report Type: 
  Country: None (occurrence: None)
  Receive Date: 20070713
  Receipt Date: 20070704
  Transmission Date: 20080115
  Serious: Yes (Other)
  Sender: FDA-Public Use
  Company Number: US-JNJFOC-20070701654

PATIENT
  Sex: Female
  Weight: 45.36 kg

DRUGS (1)
  1. TOPAMAX [Suspect]
     Indication: MIGRAINE PROPHYLAXIS
     Route: 048

REACTIONS (2)
  - LOSS OF CONSCIOUSNESS [None]
  - WEIGHT DECREASED [None]
